FAERS Safety Report 24214125 (Version 1)
Quarter: 2024Q3

REPORT INFORMATION
  Report Type: Spontaneous
  Country: US (occurrence: US)
  Receive Date: 20240815
  Receipt Date: 20240815
  Transmission Date: 20241017
  Serious: No
  Sender: AMGEN
  Company Number: US-AMGEN-USASP2024159710

PATIENT
  Age: 38 Year
  Sex: Male

DRUGS (10)
  1. PREDNISONE [Suspect]
     Active Substance: PREDNISONE
     Indication: Epstein-Barr virus associated lymphoma
     Dosage: 5-DAY 6 CYCLES
     Route: 065
  2. IBUPROFEN [Concomitant]
     Active Substance: IBUPROFEN
     Indication: Headache
     Dosage: 5-DAY 6 CYCLES
  3. ETOPOSIDE [Concomitant]
     Active Substance: ETOPOSIDE
     Dosage: 5-DAY 6 CYCLES
  4. VINCRISTINE [Concomitant]
     Active Substance: VINCRISTINE
     Dosage: 5-DAY 6 CYCLES
  5. CYCLOPHOSPHAMIDE [Concomitant]
     Active Substance: CYCLOPHOSPHAMIDE
     Dosage: 5-DAY 6 CYCLES
  6. DOXORUBICIN [Concomitant]
     Active Substance: DOXORUBICIN
     Dosage: 5-DAY 6 CYCLES
  7. BORTEZOMIB [Concomitant]
     Active Substance: BORTEZOMIB
     Dosage: 2.16 MILLIGRAM, ON DAYS 1-5 OF EACH CYCLE
     Route: 058
  8. VALACYCLOVIR [Concomitant]
     Active Substance: VALACYCLOVIR HYDROCHLORIDE
     Indication: Prophylaxis
     Dosage: 1000 MILLIGRAM, QD
     Route: 048
  9. Tbo filgrastim [Concomitant]
     Indication: Febrile neutropenia
     Dosage: 300 MICROGRAM, QD
     Route: 058
  10. METHOTREXATE [Concomitant]
     Active Substance: METHOTREXATE
     Dosage: 12 MILLIGRAM, ADMINISTERED ON LAST DAY OF EACH CYCLE
     Route: 029

REACTIONS (1)
  - Off label use [Unknown]
